FAERS Safety Report 24429926 (Version 1)
Quarter: 2024Q4

REPORT INFORMATION
  Report Type: Spontaneous
  Country: US (occurrence: US)
  Receive Date: 20241012
  Receipt Date: 20241012
  Transmission Date: 20250115
  Serious: Yes (Hospitalization, Other)
  Sender: NOVITIUM PHARMA
  Company Number: US-NOVITIUMPHARMA-2024USNVP02177

PATIENT
  Age: 64 Year
  Sex: Male

DRUGS (2)
  1. PREDNISONE [Suspect]
     Active Substance: PREDNISONE
     Indication: Autoimmune haemolytic anaemia
  2. Immune-globulin [Concomitant]
     Indication: Autoimmune haemolytic anaemia
     Route: 042

REACTIONS (5)
  - Cryptococcal fungaemia [Unknown]
  - Meningitis [Unknown]
  - Peritonitis [Unknown]
  - Fungal sepsis [Unknown]
  - Septic shock [Unknown]
